FAERS Safety Report 25554293 (Version 1)
Quarter: 2025Q3

REPORT INFORMATION
  Report Type: Spontaneous
  Country: US (occurrence: None)
  Receive Date: 20250714
  Receipt Date: 20250714
  Transmission Date: 20251020
  Serious: Yes (Hospitalization)
  Sender: FDA-CTU
  Company Number: None

PATIENT
  Age: 42 Year
  Sex: Female

DRUGS (11)
  1. OLUMIANT [Suspect]
     Active Substance: BARICITINIB
     Indication: Alopecia
     Dosage: 4 MG DAILY ORAL
     Route: 048
     Dates: start: 20241005
  2. EFFEXOR XR 150MG CAPSULES [Concomitant]
  3. PROPRANOLOL [Concomitant]
     Active Substance: PROPRANOLOL HYDROCHLORIDE
  4. QUETIAPINE [Concomitant]
     Active Substance: QUETIAPINE
  5. BUDESONIDE 3MG DR CAPSULES [Concomitant]
  6. WELLBUTRIN XL [Concomitant]
     Active Substance: BUPROPION HYDROCHLORIDE
  7. NALTREXONE 50MG TABLETS [Concomitant]
  8. ATORVASTATIN CALCIUM [Concomitant]
     Active Substance: ATORVASTATIN CALCIUM
  9. GABAPENTIN [Concomitant]
     Active Substance: GABAPENTIN
  10. HYDROXYZINE HCL 25MG TABS (WHITE) [Concomitant]
  11. TRAZODONE 150MG (HUNDRED-FIFTY) TAB [Concomitant]

REACTIONS (1)
  - Panic attack [None]

NARRATIVE: CASE EVENT DATE: 20250624
